FAERS Safety Report 5702057-4 (Version None)
Quarter: 2008Q2

REPORT INFORMATION
  Report Type: 
  Country: None (occurrence: None)
  Receive Date: 20080411
  Receipt Date: 20070619
  Transmission Date: 20081010
  Serious: No
  Sender: FDA-Public Use
  Company Number: US-ABBOTT-07P-163-0372000-00

PATIENT
  Sex: Female
  Weight: 62.198 kg

DRUGS (9)
  1. DEPAKOTE [Interacting]
     Indication: BIPOLAR DISORDER
     Route: 048
  2. ATORVASTATIN CALCIUM [Suspect]
     Indication: BLOOD CHOLESTEROL INCREASED
     Route: 048
  3. OXCARBAZEPINE [Interacting]
     Indication: DRUG USE FOR UNKNOWN INDICATION
  4. TRAMADOL HCL [Concomitant]
     Indication: PAIN
  5. ATENOLOL [Concomitant]
     Indication: HYPERTENSION
  6. RIZATRIPTAN BENZOATE [Concomitant]
     Indication: MIGRAINE
  7. TETRYZOLINE HYDROCHLORIDE [Concomitant]
     Indication: GLAUCOMA
     Dosage: 1 DROP IN EACH EYE
  8. ALENDRONATE SODIUM [Concomitant]
     Indication: OSTEOARTHRITIS
  9. FENTANYL [Concomitant]
     Indication: PAIN
     Route: 062
     Dates: start: 20070606

REACTIONS (2)
  - DRUG LEVEL DECREASED [None]
  - PAIN [None]
